FAERS Safety Report 16207093 (Version 1)
Quarter: 2019Q2

REPORT INFORMATION
  Report Type: Spontaneous
  Country: US (occurrence: US)
  Receive Date: 20190417
  Receipt Date: 20190417
  Transmission Date: 20190711
  Serious: No
  Sender: FDA-Public Use
  Company Number: PHEH2019US016209

PATIENT
  Sex: Male

DRUGS (1)
  1. JADENU [Suspect]
     Active Substance: DEFERASIROX
     Indication: MYELOPROLIFERATIVE NEOPLASM
     Dosage: 720 MG, QD
     Route: 048
     Dates: start: 201903

REACTIONS (3)
  - Malaise [Unknown]
  - Asthenia [Unknown]
  - Oropharyngeal pain [Unknown]
